FAERS Safety Report 10570856 (Version 1)
Quarter: 2014Q4

REPORT INFORMATION
  Report Type: Spontaneous
  Country: BE (occurrence: BE)
  Receive Date: 20141107
  Receipt Date: 20141107
  Transmission Date: 20150529
  Serious: Yes (Other)
  Sender: FDA-Public Use
  Company Number: PHHY2014BE140665

PATIENT
  Sex: Female
  Weight: 3.75 kg

DRUGS (1)
  1. VALPROIC ACID. [Suspect]
     Active Substance: VALPROIC ACID
     Indication: PRODUCT USED FOR UNKNOWN INDICATION
     Dosage: MATERNAL DOSE OF 500MG, TWICE DAILY
     Route: 064

REACTIONS (22)
  - Foetal anticonvulsant syndrome [Unknown]
  - Conductive deafness [Unknown]
  - Hypertonic bladder [Unknown]
  - Lip disorder [Unknown]
  - Hypertelorism of orbit [Unknown]
  - Craniosynostosis [Unknown]
  - Skull malformation [Unknown]
  - Foetal exposure during pregnancy [Unknown]
  - Dysmorphism [Unknown]
  - Prominent epicanthal folds [Unknown]
  - Atrial septal defect [Unknown]
  - Arthropathy [Unknown]
  - Ear disorder [Unknown]
  - Head circumference abnormal [Unknown]
  - Developmental delay [Unknown]
  - Deafness [Unknown]
  - Sensory loss [Unknown]
  - Nasal disorder [Unknown]
  - Speech disorder [Unknown]
  - Talipes [Unknown]
  - Motor developmental delay [Unknown]
  - Body height abnormal [Unknown]
